FAERS Safety Report 8866495 (Version 3)
Quarter: 2014Q2

REPORT INFORMATION
  Report Type: Spontaneous
  Country: PL (occurrence: PL)
  Receive Date: 20121025
  Receipt Date: 20140519
  Transmission Date: 20141212
  Serious: Yes (Hospitalization)
  Sender: FDA-Public Use
  Company Number: PL-ROCHE-1147735

PATIENT
  Age: 31 Year
  Sex: Female
  Weight: 45 kg

DRUGS (9)
  1. OMALIZUMAB [Suspect]
     Indication: ASTHMA
     Route: 065
     Dates: start: 2006
  2. OMALIZUMAB [Suspect]
     Route: 065
     Dates: start: 2007
  3. OMALIZUMAB [Suspect]
     Route: 065
     Dates: start: 2011
  4. BUDESONIDE [Suspect]
     Indication: ASTHMA
     Route: 065
  5. FORMOTEROL [Suspect]
     Indication: ASTHMA
     Route: 065
  6. PREDNISONE [Suspect]
     Indication: ASTHMA
     Route: 065
  7. SALBUTAMOL [Suspect]
     Indication: ASTHMA
     Route: 065
  8. BUDESONIDE/FORMOTEROL FUMARATE [Concomitant]
  9. FLUTICASONE [Concomitant]
     Route: 065

REACTIONS (2)
  - Urinary tract infection [Unknown]
  - Exposure during pregnancy [Unknown]
